FAERS Safety Report 6573411-6 (Version None)
Quarter: 2010Q1

REPORT INFORMATION
  Report Type: 
  Country: None (occurrence: None)
  Receive Date: 20100208
  Receipt Date: 20100129
  Transmission Date: 20100710
  Serious: Yes (Death, Other)
  Sender: FDA-Public Use
  Company Number: US-MPIJNJ-2010-01027

PATIENT
  Sex: Male
  Weight: 65.76 kg

DRUGS (5)
  1. VELCADE [Suspect]
     Indication: MULTIPLE MYELOMA
     Dosage: 1.6 MG, CYCLIC
     Route: 040
     Dates: start: 20081006, end: 20091009
  2. VELCADE [Suspect]
     Dosage: 1.6 MG, CYCLIC
     Route: 040
     Dates: start: 20090301
  3. VELCADE [Suspect]
     Dosage: 1.6 MG, CYCLIC
     Route: 040
     Dates: start: 20090501, end: 20090601
  4. REVLIMID [Suspect]
     Indication: MULTIPLE MYELOMA
     Dosage: UNK
     Dates: start: 20090101, end: 20090601
  5. COUMADIN [Concomitant]
     Indication: DRUG USE FOR UNKNOWN INDICATION
     Dosage: UNK
     Dates: start: 20050101, end: 20090601

REACTIONS (9)
  - CHANGE OF BOWEL HABIT [None]
  - CHEST PAIN [None]
  - COAGULOPATHY [None]
  - DISEASE PROGRESSION [None]
  - HYPERSENSITIVITY [None]
  - INTERNATIONAL NORMALISED RATIO DECREASED [None]
  - MYOCARDIAL INFARCTION [None]
  - PLATELET COUNT DECREASED [None]
  - WHITE BLOOD CELL COUNT DECREASED [None]
